FAERS Safety Report 6763114-7 (Version None)
Quarter: 2010Q2

REPORT INFORMATION
  Report Type: 
  Country: None (occurrence: None)
  Receive Date: 20100609
  Receipt Date: 20100602
  Transmission Date: 20101027
  Serious: Yes (Hospitalization)
  Sender: FDA-Public Use
  Company Number: US-ASTRAZENECA-2010SE25855

PATIENT
  Age: 66 Year
  Sex: Male

DRUGS (8)
  1. CRESTOR [Suspect]
     Route: 048
     Dates: start: 20100524
  2. THEOPHYLLINE [Concomitant]
  3. WARFARIN [Concomitant]
  4. ALBUTEROL [Concomitant]
  5. ADVAIR DISKUS 100/50 [Concomitant]
  6. PREDNISONE [Concomitant]
  7. SPIRIVA [Concomitant]
  8. DIGOXIN [Concomitant]

REACTIONS (2)
  - CHROMATURIA [None]
  - NEPHROLITHIASIS [None]
